FAERS Safety Report 8594891-0 (Version None)
Quarter: 2012Q3

REPORT INFORMATION
  Report Type: 
  Country: None (occurrence: None)
  Receive Date: 20120815
  Receipt Date: 20120809
  Transmission Date: 20120928
  Serious: No
  Sender: FDA-Public Use
  Company Number: US-BAYER-2012-082138

PATIENT
  Sex: Female
  Weight: 50 kg

DRUGS (2)
  1. ALEVE (CAPLET) [Suspect]
     Indication: PRODUCT USED FOR UNKNOWN INDICATION
     Dosage: 1 DF, QD WITH FOOD
     Route: 048
  2. ALEVE (CAPLET) [Suspect]
     Dosage: ALEVE TOOK IT FOR 14 DAYS + STOPPED
     Route: 048

REACTIONS (1)
  - DYSPEPSIA [None]
